FAERS Safety Report 14340463 (Version 2)
Quarter: 2018Q2

REPORT INFORMATION
  Report Type: Spontaneous
  Country: ES (occurrence: ES)
  Receive Date: 20180101
  Receipt Date: 20180410
  Transmission Date: 20180711
  Serious: Yes (Other)
  Sender: FDA-Public Use
  Company Number: ES-AUROBINDO-AUR-APL-2017-46639

PATIENT
  Age: 80 Year
  Sex: Male

DRUGS (7)
  1. ATORVASTATIN [Concomitant]
     Active Substance: ATORVASTATIN
     Indication: DYSLIPIDAEMIA
  2. ZOLEDRONIC ACID [Suspect]
     Active Substance: ZOLEDRONIC ACID
     Indication: PROSTATE CANCER
     Dosage: 4 MG, PER MONTH
     Route: 042
     Dates: start: 201311
  3. ACLIDINIUM [Concomitant]
     Active Substance: ACLIDINIUM BROMIDE
     Indication: CHRONIC OBSTRUCTIVE PULMONARY DISEASE
  4. BICALUTAMIDE. [Concomitant]
     Active Substance: BICALUTAMIDE
     Indication: DYSLIPIDAEMIA
  5. OMEPRAZOLE. [Concomitant]
     Active Substance: OMEPRAZOLE
     Indication: PRODUCT USED FOR UNKNOWN INDICATION
     Dosage: UNK
     Route: 048
  6. INDACATEROL [Concomitant]
     Active Substance: INDACATEROL
     Indication: CHRONIC OBSTRUCTIVE PULMONARY DISEASE
  7. LEUPRORELIN [Concomitant]
     Active Substance: LEUPROLIDE ACETATE
     Indication: HORMONE THERAPY
     Route: 065

REACTIONS (11)
  - Hypouricaemia [Recovering/Resolving]
  - Glycosuria [Recovering/Resolving]
  - Acute kidney injury [Recovering/Resolving]
  - Aminoaciduria [Recovering/Resolving]
  - Hyperphosphaturia [Recovering/Resolving]
  - Metabolic acidosis [Recovering/Resolving]
  - Hypophosphataemia [Recovering/Resolving]
  - Hyperuricosuria [Recovering/Resolving]
  - Fanconi syndrome [Recovering/Resolving]
  - Nephropathy [Recovering/Resolving]
  - Proteinuria [Recovering/Resolving]
